FAERS Safety Report 4751348-2 (Version None)
Quarter: 2005Q3

REPORT INFORMATION
  Report Type: 
  Country: None (occurrence: None)
  Receive Date: 20050823
  Receipt Date: 20050823
  Transmission Date: 20060218
  Serious: Yes (Hospitalization)
  Sender: FDA-Public Use
  Company Number: None

PATIENT
  Age: 46 Year
  Sex: Female
  Weight: 60.782 kg

DRUGS (10)
  1. GEODON [Suspect]
     Indication: BIPOLAR I DISORDER
     Dosage: 40 MG Q AM PO
     Route: 048
     Dates: start: 20050802, end: 20050822
  2. GEODON [Suspect]
     Dosage: 160MG QPM PO
     Route: 048
     Dates: start: 20050802, end: 20050822
  3. PROVIGIL [Concomitant]
  4. COGENTIN [Concomitant]
  5. IMITREX [Concomitant]
  6. KLONOPIN [Concomitant]
  7. FLEXERIL [Concomitant]
  8. LUNESTA [Concomitant]
  9. ZOLOFT [Concomitant]
  10. REQUIP [Concomitant]

REACTIONS (2)
  - AGGRESSION [None]
  - DRUG ABUSER [None]
